FAERS Safety Report 7576091-6 (Version None)
Quarter: 2011Q2

REPORT INFORMATION
  Report Type: 
  Country: None (occurrence: None)
  Receive Date: 20110623
  Receipt Date: 20110623
  Transmission Date: 20111010
  Serious: Yes (Other)
  Sender: FDA-Public Use
  Company Number: None

PATIENT
  Age: 33 Year
  Sex: Female
  Weight: 68.0396 kg

DRUGS (3)
  1. PRENAT-F TAB [Suspect]
     Indication: VITAMIN SUPPLEMENTATION
     Dosage: 2 CAPLETS DAILY W/FOOD
     Dates: start: 20110101, end: 20110201
  2. PRENAT-F TAB [Suspect]
     Indication: VITAMIN SUPPLEMENTATION
     Dosage: 2 CAPLETS DAILY W/FOOD
     Dates: start: 20110501
  3. PRENAT-F TAB [Suspect]

REACTIONS (2)
  - PRODUCT QUALITY ISSUE [None]
  - PALPITATIONS [None]
